FAERS Safety Report 5842662-8 (Version None)
Quarter: 2008Q3

REPORT INFORMATION
  Report Type: 
  Country: None (occurrence: None)
  Receive Date: 20080812
  Receipt Date: 20080804
  Transmission Date: 20090109
  Serious: Yes (Hospitalization, Other)
  Sender: FDA-Public Use
  Company Number: US-ELI_LILLY_AND_COMPANY-US200806001410

PATIENT
  Age: 84 Year
  Sex: Female
  Weight: 53.515 kg

DRUGS (18)
  1. FORTEO [Suspect]
     Indication: OSTEOPOROSIS
     Dosage: 20 UG, DAILY (1/D)
     Dates: start: 20080229
  2. CENTRUM SILVER [Concomitant]
  3. CITRACAL + D [Concomitant]
     Dosage: UNK, DAILY (1/D)
  4. COUMADIN [Concomitant]
     Dosage: 5 MG, DAILY (1/D)
  5. DIGITEK [Concomitant]
     Dosage: 125 UG, UNK
  6. ERYTHROMYCIN [Concomitant]
     Dosage: UNK, AS NEEDED
  7. GLUCOSAMINE [Concomitant]
     Dosage: UNK, DAILY (1/D)
  8. IMODIUM [Concomitant]
     Dosage: UNK, AS NEEDED
  9. POTASSIUM CHLORIDE [Concomitant]
     Dosage: 10 MEQ, DAILY (1/D)
  10. LASIX [Concomitant]
     Dosage: 20 MG, DAILY (1/D)
  11. LIDEX [Concomitant]
     Dosage: 0.05 %, 2/D
  12. LISINOPRIL [Concomitant]
     Dosage: 2.5 MG, DAILY (1/D)
  13. LUMIGAN [Concomitant]
     Dosage: 0.03 UNK, EACH EVENING
  14. PROPOXYPHENE HCL [Concomitant]
     Dosage: 650 MG, AS NEEDED
  15. QUESTRAN [Concomitant]
     Dosage: 4 MG, 2/D
  16. RHINOCORT [Concomitant]
     Dosage: UNK, AS NEEDED
  17. TOPROL-XL [Concomitant]
     Dosage: 50 MG, DAILY (1/D)
  18. VICODIN [Concomitant]
     Dosage: UNK, AS NEEDED

REACTIONS (10)
  - ALTERED STATE OF CONSCIOUSNESS [None]
  - ANXIETY [None]
  - DIARRHOEA [None]
  - DYSPNOEA EXERTIONAL [None]
  - HAIR DISORDER [None]
  - MEMORY IMPAIRMENT [None]
  - MUSCLE SPASMS [None]
  - MYOCARDIAL INFARCTION [None]
  - TRANSIENT ISCHAEMIC ATTACK [None]
  - WEIGHT DECREASED [None]
